FAERS Safety Report 23430149 (Version 10)
Quarter: 2025Q4

REPORT INFORMATION
  Report Type: Report from Study
  Country: US (occurrence: US)
  Receive Date: 20240123
  Receipt Date: 20251029
  Transmission Date: 20260118
  Serious: Yes (Hospitalization, Disabling, Other)
  Sender: ABBVIE
  Company Number: US-ABBVIE-5597363

PATIENT
  Age: 69 Year
  Sex: Female
  Weight: 73 kg

DRUGS (16)
  1. SKYRIZI [Suspect]
     Active Substance: RISANKIZUMAB-RZAA
     Indication: Psoriasis
     Dosage: LAST ADMIN DATE: 2022, SOLUTION FOR INJECTION IN PRE-FILLED PEN
     Route: 058
     Dates: start: 20220830
  2. SKYRIZI [Suspect]
     Active Substance: RISANKIZUMAB-RZAA
     Dosage: SOLUTION FOR INJECTION IN PRE-FILLED PEN
     Route: 058
     Dates: start: 20221031
  3. SKYRIZI [Suspect]
     Active Substance: RISANKIZUMAB-RZAA
     Dosage: SOLUTION FOR INJECTION IN PRE-FILLED PEN
     Route: 058
     Dates: start: 20230217
  4. SKYRIZI [Suspect]
     Active Substance: RISANKIZUMAB-RZAA
     Dosage: SOLUTION FOR INJECTION IN PRE-FILLED PEN
     Route: 058
  5. SKYRIZI [Suspect]
     Active Substance: RISANKIZUMAB-RZAA
     Dosage: DRUG END DATE -2022, SOLUTION FOR INJECTION IN PRE-FILLED PEN
     Route: 058
     Dates: start: 20220928
  6. LISINOPRIL [Concomitant]
     Active Substance: LISINOPRIL
     Indication: Essential tremor
  7. ALBUTEROL [Concomitant]
     Active Substance: ALBUTEROL
     Indication: Emphysema
     Dosage: 90 MCG?INHALER
  8. SPIRIVA [Concomitant]
     Active Substance: TIOTROPIUM BROMIDE MONOHYDRATE
     Indication: Chronic obstructive pulmonary disease
     Dosage: ONE A DAY
  9. SIMVASTATIN [Concomitant]
     Active Substance: SIMVASTATIN
     Indication: Blood cholesterol increased
  10. CEPHALEXIN [Concomitant]
     Active Substance: CEPHALEXIN
     Indication: Product used for unknown indication
  11. METHENAMINE HIPPURATE [Concomitant]
     Active Substance: METHENAMINE HIPPURATE
     Indication: Product used for unknown indication
  12. COSENTYX [Concomitant]
     Active Substance: SECUKINUMAB
     Indication: Product used for unknown indication
  13. COENZYME Q10 [Concomitant]
     Active Substance: DIETARY SUPPLEMENT\UBIDECARENONE
     Indication: Product used for unknown indication
  14. MINERALS\VITAMINS [Concomitant]
     Active Substance: MINERALS\VITAMINS
     Indication: Product used for unknown indication
  15. TRIAMCINOLONE [Concomitant]
     Active Substance: TRIAMCINOLONE
     Indication: Product used for unknown indication
  16. TROPICAMIDE [Concomitant]
     Active Substance: TROPICAMIDE
     Indication: Product used for unknown indication

REACTIONS (49)
  - Gallbladder enlargement [Recovered/Resolved]
  - Blood glucose increased [Recovering/Resolving]
  - Cataract [Recovered/Resolved]
  - Cholelithiasis [Recovering/Resolving]
  - Dysgraphia [Recovering/Resolving]
  - Weight decreased [Recovering/Resolving]
  - Chronic obstructive pulmonary disease [Recovered/Resolved]
  - Gallbladder enlargement [Recovered/Resolved]
  - Pain [Recovering/Resolving]
  - Large intestine polyp [Recovering/Resolving]
  - Basal cell carcinoma [Recovered/Resolved]
  - Adverse food reaction [Recovering/Resolving]
  - Breast cancer stage III [Recovering/Resolving]
  - Alopecia [Recovering/Resolving]
  - Rhinorrhoea [Recovering/Resolving]
  - Cough [Recovering/Resolving]
  - Diarrhoea [Recovering/Resolving]
  - Pneumonia [Recovering/Resolving]
  - Skin discolouration [Recovering/Resolving]
  - Dry skin [Recovering/Resolving]
  - Lacrimation increased [Recovering/Resolving]
  - Pancreatitis [Recovered/Resolved]
  - Type 2 diabetes mellitus [Recovering/Resolving]
  - Hyperlipidaemia [Recovering/Resolving]
  - Psoriasis [Recovering/Resolving]
  - Emphysema [Recovering/Resolving]
  - Carpal tunnel syndrome [Recovering/Resolving]
  - Diabetic neuropathy [Recovering/Resolving]
  - Tremor [Recovering/Resolving]
  - Lymphoedema [Recovering/Resolving]
  - Paranasal cyst [Recovering/Resolving]
  - Chronic sinusitis [Recovering/Resolving]
  - Obstructive airways disorder [Recovering/Resolving]
  - Vertigo [Recovering/Resolving]
  - Neuropathy peripheral [Recovering/Resolving]
  - Nicotine dependence [Recovering/Resolving]
  - Urinary tract infection [Recovering/Resolving]
  - Micturition urgency [Recovering/Resolving]
  - Atrophic vulvovaginitis [Recovering/Resolving]
  - Lower urinary tract symptoms [Recovering/Resolving]
  - Bladder mass [Recovering/Resolving]
  - Drug abuse [Recovering/Resolving]
  - Microalbuminuria [Recovering/Resolving]
  - Oral surgery [Recovering/Resolving]
  - Robotic surgery [Recovering/Resolving]
  - Basal cell carcinoma [Recovered/Resolved]
  - Transurethral bladder resection [Recovering/Resolving]
  - Rash papular [Unknown]
  - Scar [Unknown]

NARRATIVE: CASE EVENT DATE: 20200111
